FAERS Safety Report 18215339 (Version 1)
Quarter: 2020Q3

REPORT INFORMATION
  Report Type: Spontaneous
  Country: US (occurrence: US)
  Receive Date: 20200901
  Receipt Date: 20200901
  Transmission Date: 20201103
  Serious: No
  Sender: FDA-Public Use
  Company Number: US-SA-2020SA224559

PATIENT

DRUGS (2)
  1. DUPIXENT [Suspect]
     Active Substance: DUPILUMAB
     Indication: DERMATITIS ATOPIC
     Dosage: 300 MG, QOW
     Route: 058
  2. VIBERZI [Suspect]
     Active Substance: ELUXADOLINE

REACTIONS (5)
  - Pruritus [Unknown]
  - Nervousness [Unknown]
  - Dry eye [Unknown]
  - Depression [Unknown]
  - Dermatitis atopic [Unknown]
